FAERS Safety Report 19776618 (Version 1)
Quarter: 2021Q3

REPORT INFORMATION
  Report Type: Spontaneous
  Country: FR (occurrence: FR)
  Receive Date: 20210901
  Receipt Date: 20210901
  Transmission Date: 20211014
  Serious: Yes (Hospitalization)
  Sender: FDA-Public Use
  Company Number: FR-009507513-2108FRA007084

PATIENT
  Age: 71 Year
  Sex: Male
  Weight: 90 kg

DRUGS (1)
  1. KEYTRUDA [Suspect]
     Active Substance: PEMBROLIZUMAB
     Indication: CLEAR CELL RENAL CELL CARCINOMA
     Dosage: 200 MILLIGRAM, Q3W (EVERY 3 WEEKS)
     Route: 042
     Dates: start: 20210518, end: 20210518

REACTIONS (1)
  - Anaphylactoid shock [Recovered/Resolved]

NARRATIVE: CASE EVENT DATE: 20210518
